FAERS Safety Report 9114678 (Version 4)
Quarter: 2013Q1

REPORT INFORMATION
  Report Type: Spontaneous
  Country: JP (occurrence: None)
  Receive Date: 20130129
  Receipt Date: 20130225
  Transmission Date: 20140127
  Serious: Yes (Hospitalization)
  Sender: FDA-Public Use
  Company Number: JP-010708

PATIENT
  Age: 84 Year
  Sex: Male

DRUGS (16)
  1. GONAX [Suspect]
     Indication: PROSTATE CANCER
     Route: 058
     Dates: start: 20130111, end: 20130111
  2. GONAX [Suspect]
     Indication: BONE PAIN
     Route: 058
     Dates: start: 20130111, end: 20130111
  3. FOIPAN [Concomitant]
  4. NEUROVITAN /00280501/ [Concomitant]
  5. URSODEOXYCHOLIC ACID [Concomitant]
  6. MYSLEE [Concomitant]
  7. HOCHUUEKKITOU [Concomitant]
  8. RACOL [Concomitant]
  9. DIOVAN [Concomitant]
  10. FRANDOL [Concomitant]
  11. CASODEX [Concomitant]
  12. TOUGHMAC E [Concomitant]
  13. ONEALFA [Concomitant]
  14. SAIREI-TO [Concomitant]
  15. PREDNISOLONE [Concomitant]
  16. BONOTEO [Concomitant]

REACTIONS (2)
  - Loss of consciousness [None]
  - Dehydration [None]
